FAERS Safety Report 5488343-4 (Version None)
Quarter: 2007Q4

REPORT INFORMATION
  Report Type: 
  Country: None (occurrence: None)
  Receive Date: 20071017
  Receipt Date: 20071012
  Transmission Date: 20080405
  Serious: Yes (Other)
  Sender: FDA-Public Use
  Company Number: A0688103A

PATIENT
  Age: 2 Month
  Sex: Male
  Weight: 5.4 kg

DRUGS (1)
  1. ZANTAC [Suspect]
     Dates: start: 20070821, end: 20070823

REACTIONS (2)
  - DRUG EXPOSURE VIA BREAST MILK [None]
  - ERYTHEMA MULTIFORME [None]
